FAERS Safety Report 6218045-8 (Version None)
Quarter: 2009Q2

REPORT INFORMATION
  Report Type: 
  Country: None (occurrence: None)
  Receive Date: 20090602
  Receipt Date: 20090209
  Transmission Date: 20091009
  Serious: Yes (Hospitalization)
  Sender: FDA-Public Use
  Company Number: 8040376

PATIENT
  Age: 29 Year
  Sex: Female
  Weight: 58.9 kg

DRUGS (11)
  1. KEPPRA [Suspect]
     Indication: CONVULSION
     Dosage: 2500 MG 2/D PO : 3000 MG 2/D PO : 2000 MG 2/D PO
     Route: 048
     Dates: start: 20080301
  2. KEPPRA [Suspect]
     Indication: CONVULSION
     Dosage: 1000 MG 2/D IV
     Route: 042
     Dates: start: 20080301, end: 20081101
  3. VITAMIN TAB [Concomitant]
  4. THYROID TAB [Concomitant]
  5. ZONEGRAN [Concomitant]
  6. TOPAMAX [Concomitant]
  7. LAMICTAL [Concomitant]
  8. TRILEPTAL [Concomitant]
  9. LORAZEPAM [Concomitant]
  10. VALIUM [Concomitant]
  11. DILANTIN [Concomitant]

REACTIONS (1)
  - CONVULSION [None]
